FAERS Safety Report 9298627 (Version 1)
Quarter: 2013Q2

REPORT INFORMATION
  Report Type: Report from Study
  Country: US (occurrence: US)
  Receive Date: 20130520
  Receipt Date: 20130520
  Transmission Date: 20140414
  Serious: Yes (Hospitalization)
  Sender: FDA-Public Use
  Company Number: US-PFIZER INC-2013152461

PATIENT
  Age: 32 Year
  Sex: Female

DRUGS (4)
  1. GABAPENTIN [Suspect]
     Dosage: UNK
  2. TRAMADOL HCL [Suspect]
     Dosage: UNK
  3. SERTRALINE HCL [Suspect]
     Dosage: UNK
  4. METHADONE [Suspect]
     Dosage: UNK

REACTIONS (8)
  - Drug abuse [Unknown]
  - Serotonin syndrome [Unknown]
  - Myoclonus [Unknown]
  - Fall [Unknown]
  - Joint injury [Unknown]
  - Convulsion [Unknown]
  - Blood creatine phosphokinase increased [Unknown]
  - Tachycardia [Unknown]
